FAERS Safety Report 7389203-4 (Version None)
Quarter: 2011Q2

REPORT INFORMATION
  Report Type: 
  Country: None (occurrence: None)
  Receive Date: 20110401
  Receipt Date: 20110322
  Transmission Date: 20111010
  Serious: Yes (Other)
  Sender: FDA-Public Use
  Company Number: UA-TEVA-273182ISR

PATIENT
  Age: 11 Year
  Sex: Male

DRUGS (2)
  1. DEXAMETHASONE [Concomitant]
  2. IFOSFAMIDE [Suspect]
     Indication: T-CELL TYPE ACUTE LEUKAEMIA
     Route: 042
     Dates: start: 20110305, end: 20110305

REACTIONS (3)
  - DYSPNOEA [None]
  - CYANOSIS [None]
  - TACHYCARDIA [None]
